FAERS Safety Report 20820035 (Version 8)
Quarter: 2022Q4

REPORT INFORMATION
  Report Type: Report from Study
  Country: MX (occurrence: MX)
  Receive Date: 20220512
  Receipt Date: 20221121
  Transmission Date: 20230112
  Serious: Yes (Other)
  Sender: FDA-Public Use
  Company Number: MX-NOVARTISPH-NVSC2022MX083734

PATIENT
  Sex: Female
  Weight: 77 kg

DRUGS (5)
  1. TASIGNA [Suspect]
     Active Substance: NILOTINIB
     Indication: Chronic myeloid leukaemia
     Dosage: 400 MG, QD
     Route: 048
  2. TASIGNA [Suspect]
     Active Substance: NILOTINIB
     Dosage: UNK
     Route: 048
  3. INSULIN NOS [Concomitant]
     Active Substance: INSULIN NOS
     Indication: Product used for unknown indication
     Dosage: UNK
     Route: 065
  4. FERROUS SULFATE [Concomitant]
     Active Substance: FERROUS SULFATE
     Indication: Product used for unknown indication
     Dosage: UNK
     Route: 065
  5. SENNOSIDES [Concomitant]
     Active Substance: SENNOSIDES
     Indication: Product used for unknown indication
     Dosage: UNK
     Route: 065

REACTIONS (38)
  - Fall [Unknown]
  - Hand fracture [Unknown]
  - Upper limb fracture [Unknown]
  - Pneumonia [Unknown]
  - Neoplasm malignant [Unknown]
  - Chronic myeloid leukaemia recurrent [Unknown]
  - Bone swelling [Unknown]
  - Lung disorder [Unknown]
  - Dizziness [Unknown]
  - Weight increased [Unknown]
  - Asthenia [Unknown]
  - Abdominal discomfort [Unknown]
  - Vomiting [Unknown]
  - Insomnia [Unknown]
  - Dehydration [Unknown]
  - Illness [Unknown]
  - Ill-defined disorder [Unknown]
  - Skin wrinkling [Not Recovered/Not Resolved]
  - Fluid intake reduced [Unknown]
  - Somnolence [Unknown]
  - Disease complication [Unknown]
  - Discouragement [Unknown]
  - Depressed mood [Unknown]
  - Decreased appetite [Unknown]
  - Platelet count decreased [Unknown]
  - Headache [Unknown]
  - Pain in extremity [Unknown]
  - Malaise [Unknown]
  - Pyrexia [Unknown]
  - Fatigue [Unknown]
  - Anaemia [Not Recovered/Not Resolved]
  - Constipation [Not Recovered/Not Resolved]
  - Hypersensitivity [Unknown]
  - Abdominal distension [Unknown]
  - Nocturia [Not Recovered/Not Resolved]
  - Wheezing [Unknown]
  - Muscle spasms [Unknown]
  - Dry skin [Not Recovered/Not Resolved]
